FAERS Safety Report 21622303 (Version 1)
Quarter: 2022Q4

REPORT INFORMATION
  Report Type: Spontaneous
  Country: US (occurrence: US)
  Receive Date: 20221121
  Receipt Date: 20221121
  Transmission Date: 20230112
  Serious: No
  Sender: FDA-Public Use
  Company Number: US-SA-SAC20221115001308

PATIENT
  Sex: Female

DRUGS (1)
  1. DUPIXENT [Suspect]
     Active Substance: DUPILUMAB
     Indication: Asthma
     Dosage: 200 MG, Q15D
     Route: 058
     Dates: start: 202206

REACTIONS (4)
  - Cluster headache [Unknown]
  - Migraine [Unknown]
  - Wheezing [Unknown]
  - Therapeutic response shortened [Unknown]
